FAERS Safety Report 9519395 (Version 1)
Quarter: 2013Q3

REPORT INFORMATION
  Report Type: Spontaneous
  Country: US (occurrence: None)
  Receive Date: 20130911
  Receipt Date: 20130911
  Transmission Date: 20140515
  Serious: No
  Sender: FDA-Public Use
  Company Number: None

PATIENT
  Age: 64 Year
  Sex: Male

DRUGS (1)
  1. SENSIPAR [Suspect]
     Dosage: 30 MG DAILY PO
     Route: 048
     Dates: start: 20130508

REACTIONS (1)
  - Laziness [None]
